FAERS Safety Report 20847595 (Version 1)
Quarter: 2022Q2

REPORT INFORMATION
  Report Type: Spontaneous
  Country: CN (occurrence: CN)
  Receive Date: 20220519
  Receipt Date: 20220519
  Transmission Date: 20220721
  Serious: Yes (Other)
  Sender: FDA-Public Use
  Company Number: CN-BRISTOL-MYERS SQUIBB COMPANY-2022-027002

PATIENT
  Sex: Male

DRUGS (5)
  1. VIDAZA [Suspect]
     Active Substance: AZACITIDINE
     Indication: Acute myeloid leukaemia
     Dosage: FREQUENCY ONCE DAILY
     Route: 065
     Dates: start: 20190503
  2. VIDAZA [Suspect]
     Active Substance: AZACITIDINE
     Route: 065
     Dates: start: 20190614
  3. VENETOCLAX [Suspect]
     Active Substance: VENETOCLAX
     Indication: Acute myeloid leukaemia
     Dosage: 100 MG ON DAY 1, 200 MG ON DAY 2, 400 MG ON DAY 3 TO 25
     Route: 065
     Dates: start: 20190503
  4. VENETOCLAX [Suspect]
     Active Substance: VENETOCLAX
     Route: 065
     Dates: start: 20190614
  5. VENETOCLAX [Suspect]
     Active Substance: VENETOCLAX
     Dosage: 200 MG OF VENETOCLAX  ORALLY FOR 28  DAYS,  WITH  AN  INTERVAL  OF  28  DAYS  FOR  MAINTENANCE  TREA
     Route: 048
     Dates: start: 20190620

REACTIONS (2)
  - Blood disorder [Recovered/Resolved]
  - Nausea [Unknown]

NARRATIVE: CASE EVENT DATE: 20190101
